FAERS Safety Report 7966402-1 (Version None)
Quarter: 2011Q4

REPORT INFORMATION
  Report Type: 
  Country: None (occurrence: None)
  Receive Date: 20111208
  Receipt Date: 20111201
  Transmission Date: 20120403
  Serious: Yes (Congenital Anomaly, Other)
  Sender: FDA-Public Use
  Company Number: GB-GILEAD-2011-0044197

PATIENT
  Sex: Male

DRUGS (12)
  1. ASPIRIN [Concomitant]
     Route: 064
  2. METFORMIN HCL [Concomitant]
     Route: 064
  3. NORVIR [Suspect]
     Indication: HIV INFECTION
     Route: 064
     Dates: start: 20100801, end: 20110901
  4. FERROUS SULFATE TAB [Concomitant]
     Route: 064
  5. EMTRICITABINE/TENOFOVIR DISOPROXIL FUMARATE [Suspect]
     Indication: HIV INFECTION
     Dosage: 1 DF, QD
     Route: 064
     Dates: start: 20100801, end: 20110901
  6. EFAVIRENZ [Suspect]
     Indication: HIV INFECTION
     Dosage: 600 MG, QD
     Route: 048
     Dates: start: 20100316, end: 20100616
  7. RAMIPRIL [Concomitant]
  8. EFAVIRENZ/EMTRICITABINE/TENOFOVIR DISOPROXIL FUMARATE [Suspect]
     Indication: HIV INFECTION
     Dosage: 1 DF, QD
     Route: 064
     Dates: start: 20100616, end: 20100801
  9. ATAZANAVIR [Suspect]
     Indication: HIV INFECTION
     Route: 064
     Dates: start: 20100801, end: 20110901
  10. LABETALOL HCL [Concomitant]
     Route: 064
  11. INSULIN [Concomitant]
     Route: 064
  12. EMTRICITABINE/TENOFOVIR DISOPROXIL FUMARATE [Suspect]
     Dosage: UNK
     Dates: start: 20100316, end: 20100616

REACTIONS (3)
  - CONGENITAL TERATOMA [None]
  - ULTRASOUND ANTENATAL SCREEN ABNORMAL [None]
  - FOETAL EXPOSURE DURING PREGNANCY [None]
